FAERS Safety Report 25557617 (Version 3)
Quarter: 2025Q3

REPORT INFORMATION
  Report Type: Spontaneous
  Country: US (occurrence: US)
  Receive Date: 20250715
  Receipt Date: 20250718
  Transmission Date: 20251020
  Serious: Yes (Hospitalization, Other)
  Sender: NOVO NORDISK
  Company Number: US-NOVOPROD-1276964

PATIENT
  Age: 44 Year
  Sex: Male
  Weight: 103.4 kg

DRUGS (12)
  1. OZEMPIC [Suspect]
     Active Substance: SEMAGLUTIDE
     Indication: Type 2 diabetes mellitus
     Dosage: 1 MG, QW
     Route: 058
     Dates: start: 20191017, end: 20220128
  2. MOUNJARO [Suspect]
     Active Substance: TIRZEPATIDE
     Dosage: 15 MG, QW
     Dates: start: 20231207, end: 20240422
  3. MOUNJARO [Suspect]
     Active Substance: TIRZEPATIDE
     Indication: Type 2 diabetes mellitus
     Dosage: 10 MG, QW
     Dates: start: 20221109, end: 20231207
  4. RYBELSUS [Suspect]
     Active Substance: SEMAGLUTIDE
     Indication: Type 2 diabetes mellitus
     Dosage: 7 MG, QD
     Route: 048
     Dates: start: 20220128, end: 20221109
  5. METFORMIN [Concomitant]
     Active Substance: METFORMIN HYDROCHLORIDE
     Indication: Type 2 diabetes mellitus
     Dates: start: 20180814, end: 20241227
  6. ATORVASTATIN [Concomitant]
     Active Substance: ATORVASTATIN
     Indication: Blood cholesterol increased
     Dates: start: 20190424, end: 20241227
  7. TESTOSTERONE [Concomitant]
     Active Substance: TESTOSTERONE
     Indication: Hormone replacement therapy
     Dates: start: 20200407, end: 20241227
  8. LISINOPRIL [Concomitant]
     Active Substance: LISINOPRIL
     Indication: Hypertension
     Dates: start: 20190124, end: 20241227
  9. NYSTATIN [Concomitant]
     Active Substance: NYSTATIN
     Indication: Blood triglycerides increased
  10. NYSTATIN [Concomitant]
     Active Substance: NYSTATIN
     Indication: Blood cholesterol increased
  11. CARAFATE [Concomitant]
     Active Substance: SUCRALFATE
     Indication: Irritable bowel syndrome
  12. COLACE [Concomitant]
     Active Substance: DOCUSATE SODIUM
     Indication: Irritable bowel syndrome

REACTIONS (2)
  - Impaired gastric emptying [Not Recovered/Not Resolved]
  - Off label use [Unknown]

NARRATIVE: CASE EVENT DATE: 20190101
